FAERS Safety Report 7177894-2 (Version None)
Quarter: 2010Q4

REPORT INFORMATION
  Report Type: 
  Country: None (occurrence: None)
  Receive Date: 20101220
  Receipt Date: 20101206
  Transmission Date: 20110411
  Serious: Yes (Hospitalization)
  Sender: FDA-Public Use
  Company Number: DE-AMGEN-DEUCT2010008840

PATIENT

DRUGS (12)
  1. ETANERCEPT [Suspect]
     Indication: RHEUMATOID ARTHRITIS
     Dosage: 25 MG, 2 TIMES/WK
     Dates: start: 20101116, end: 20101116
  2. LANTAREL [Concomitant]
     Indication: RHEUMATOID ARTHRITIS
     Dosage: 10 MG, WEEKLY
     Dates: start: 20041201
  3. PREDNISOLONE [Concomitant]
     Indication: RHEUMATOID ARTHRITIS
     Dosage: 2.5 MG, 1X/DAY
     Route: 048
     Dates: start: 20041201
  4. DICLAC [Concomitant]
     Indication: RHEUMATOID ARTHRITIS
     Dosage: 75 MG, 1X/DAY
     Dates: start: 20041201
  5. LISINOPRIL [Concomitant]
     Indication: HYPERTENSION
     Dosage: 5 MG, 1X/DAY
     Route: 048
     Dates: start: 20100701
  6. LISINOPRIL [Concomitant]
     Dosage: 5 MG, 2X/DAY
     Dates: start: 20100701, end: 20101101
  7. TIMOHEXAL [Concomitant]
     Indication: GLAUCOMA
     Dosage: UNK
     Dates: start: 20100701
  8. INDIVINA [Concomitant]
     Indication: MENOPAUSE
     Dosage: 1MG/2.5MG, FREQUENCY UNKNOWN
     Route: 048
     Dates: start: 20100301
  9. AMLODIPINE [Concomitant]
     Dosage: 10 MG, 1X/DAY
  10. PANTOZOL [Concomitant]
     Dosage: 20 MG, 1X/DAY
  11. METOPROLOL SUCCINATE [Concomitant]
     Dosage: 47.5 MG, 1X/DAY
  12. FOLIC ACID [Concomitant]
     Dosage: UNK

REACTIONS (1)
  - HYPERTENSIVE CRISIS [None]
